FAERS Safety Report 8411295-1 (Version None)
Quarter: 2012Q2

REPORT INFORMATION
  Report Type: 
  Country: None (occurrence: None)
  Receive Date: 20120605
  Receipt Date: 20120530
  Transmission Date: 20120825
  Serious: Yes (Disabling, Other)
  Sender: FDA-Public Use
  Company Number: US-PFIZER INC-2012130880

PATIENT
  Sex: Male
  Weight: 111 kg

DRUGS (4)
  1. EMERGEN-C [Suspect]
     Indication: PYREXIA
     Dosage: UNK
     Dates: start: 19940101
  2. SPIRONOLACTONE [Suspect]
     Indication: FLUID RETENTION
     Dosage: 100 MG, UNK
     Route: 048
     Dates: end: 20120529
  3. POTASSIUM CHLORIDE [Suspect]
     Indication: FLUID RETENTION
     Dosage: 20 MEQ, UNK
     Dates: end: 20120529
  4. EMERGEN-C [Suspect]
     Indication: PAIN

REACTIONS (5)
  - NEPHROLITHIASIS [None]
  - HYPOTENSION [None]
  - HEPATIC CIRRHOSIS [None]
  - IMPAIRED WORK ABILITY [None]
  - FATIGUE [None]
